FAERS Safety Report 22270537 (Version 1)
Quarter: 2023Q2

REPORT INFORMATION
  Report Type: Spontaneous
  Country: US (occurrence: None)
  Receive Date: 20230430
  Receipt Date: 20230430
  Transmission Date: 20230722
  Serious: Yes (Life-Threatening, Hospitalization, Disabling, Other)
  Sender: FDA-Public Use
  Company Number: None

PATIENT
  Age: 31 Year
  Sex: Female

DRUGS (1)
  1. LAMICTAL [Suspect]
     Active Substance: LAMOTRIGINE

REACTIONS (5)
  - Quality of life decreased [None]
  - Near death experience [None]
  - Product complaint [None]
  - Therapy change [None]
  - Legal problem [None]

NARRATIVE: CASE EVENT DATE: 20210405
